FAERS Safety Report 4659320-8 (Version None)
Quarter: 2005Q2

REPORT INFORMATION
  Report Type: 
  Country: None (occurrence: None)
  Receive Date: 20050511
  Receipt Date: 20050504
  Transmission Date: 20051028
  Serious: Yes (Hospitalization, Other)
  Sender: FDA-Public Use
  Company Number: FR-BRISTOL-MYERS SQUIBB COMPANY-12956538

PATIENT
  Age: 59 Year
  Sex: Female

DRUGS (2)
  1. SUSTIVA [Suspect]
     Indication: HIV INFECTION
     Route: 048
  2. ZERIT [Concomitant]
     Indication: HIV INFECTION

REACTIONS (5)
  - HEADACHE [None]
  - HYPERHIDROSIS [None]
  - INTENTIONAL MISUSE [None]
  - NIGHTMARE [None]
  - SUICIDE ATTEMPT [None]
